FAERS Safety Report 12459316 (Version 2)
Quarter: 2016Q3

REPORT INFORMATION
  Report Type: Spontaneous
  Country: JP (occurrence: JP)
  Receive Date: 20160613
  Receipt Date: 20160706
  Transmission Date: 20161109
  Serious: Yes (Other)
  Sender: FDA-Public Use
  Company Number: JP-GLAXOSMITHKLINE-JP2016JPN081963

PATIENT
  Sex: Female

DRUGS (1)
  1. VALACICLOVIR HYDROCHLORIDE [Suspect]
     Active Substance: VALACYCLOVIR HYDROCHLORIDE
     Indication: HERPES ZOSTER
     Dosage: 3000 MG, 1D
     Route: 048

REACTIONS (4)
  - Acute kidney injury [Recovering/Resolving]
  - Toxic encephalopathy [Recovering/Resolving]
  - Altered state of consciousness [Recovering/Resolving]
  - Somnolence [Recovering/Resolving]
